FAERS Safety Report 15629301 (Version 2)
Quarter: 2018Q4

REPORT INFORMATION
  Report Type: Report from Study
  Country: None (occurrence: US)
  Receive Date: 20181117
  Receipt Date: 20181129
  Transmission Date: 20190205
  Serious: Yes (Hospitalization)
  Sender: FDA-Public Use
  Company Number: US-ABBVIE-18K-163-2556918-00

PATIENT
  Age: 41 Year
  Sex: Male
  Weight: 54.48 kg

DRUGS (7)
  1. HUMIRA [Suspect]
     Active Substance: ADALIMUMAB
     Indication: CROHN^S DISEASE
     Route: 058
     Dates: start: 20150303, end: 201810
  2. LIALDA [Concomitant]
     Active Substance: MESALAMINE
     Indication: CROHN^S DISEASE
  3. CALCIUM [Concomitant]
     Active Substance: CALCIUM
     Indication: OSTEOPENIA
  4. JUBLIA [Concomitant]
     Active Substance: EFINACONAZOLE
     Indication: ONYCHOMYCOSIS
  5. HUMIRA [Suspect]
     Active Substance: ADALIMUMAB
     Route: 058
     Dates: start: 20181009
  6. ALLOPURINOL. [Concomitant]
     Active Substance: ALLOPURINOL
     Indication: GOUT
  7. VITAMIN D [Concomitant]
     Active Substance: CHOLECALCIFEROL
     Indication: VITAMIN SUPPLEMENTATION

REACTIONS (1)
  - Rectal polyp [Unknown]

NARRATIVE: CASE EVENT DATE: 201810
